FAERS Safety Report 8096981-8 (Version None)
Quarter: 2012Q1

REPORT INFORMATION
  Report Type: 
  Country: None (occurrence: None)
  Receive Date: 20120129
  Receipt Date: 20111204
  Transmission Date: 20120608
  Serious: No
  Sender: FDA-Public Use
  Company Number: US-ABBOTT-11P-163-0880763-00

PATIENT
  Age: 72 Year
  Sex: Female

DRUGS (1)
  1. HUMIRA [Suspect]
     Indication: RHEUMATOID ARTHRITIS
     Dates: start: 20111021, end: 20111202

REACTIONS (4)
  - GAIT DISTURBANCE [None]
  - LOCALISED INFECTION [None]
  - WEIGHT BEARING DIFFICULTY [None]
  - PAIN IN EXTREMITY [None]
